FAERS Safety Report 4376709-5 (Version None)
Quarter: 2004Q2

REPORT INFORMATION
  Report Type: 
  Country: None (occurrence: None)
  Receive Date: 20040608
  Receipt Date: 20040528
  Transmission Date: 20050107
  Serious: Yes (Hospitalization)
  Sender: FDA-Public Use
  Company Number: 2004036226

PATIENT
  Age: 72 Year
  Sex: Female
  Weight: 53.5244 kg

DRUGS (2)
  1. BENADRYL [Suspect]
     Dosage: ORAL
     Route: 048
     Dates: end: 19980101
  2. ZOLPIDEM TARTRATE [Concomitant]

REACTIONS (2)
  - AMNESIA [None]
  - CONVULSION [None]
